FAERS Safety Report 4436372-1 (Version None)
Quarter: 2004Q3

REPORT INFORMATION
  Report Type: 
  Country: None (occurrence: None)
  Receive Date: 20040830
  Receipt Date: 20030417
  Transmission Date: 20050211
  Serious: No
  Sender: FDA-Public Use
  Company Number: US-BRISTOL-MYERS SQUIBB COMPANY-12246468

PATIENT
  Age: 30 Year
  Sex: Female

DRUGS (3)
  1. ABILIFY [Suspect]
     Indication: SCHIZOAFFECTIVE DISORDER
     Route: 048
     Dates: start: 20021217
  2. PAXIL [Concomitant]
     Dates: start: 20030403, end: 20030501
  3. PRENATAL VITAMINS [Concomitant]

REACTIONS (2)
  - NORMAL NEWBORN [None]
  - TWIN PREGNANCY [None]
